FAERS Safety Report 19824348 (Version 1)
Quarter: 2021Q3

REPORT INFORMATION
  Report Type: Spontaneous
  Country: US (occurrence: US)
  Receive Date: 20210913
  Receipt Date: 20210913
  Transmission Date: 20211014
  Serious: No
  Sender: FDA-Public Use
  Company Number: US-KALA PHARAMACEUTICALS-2021KLA00071

PATIENT
  Age: 44 Year
  Sex: Female
  Weight: 84.81 kg

DRUGS (2)
  1. INVELTYS [Suspect]
     Active Substance: LOTEPREDNOL ETABONATE
     Indication: POSTOPERATIVE CARE
  2. INVELTYS [Suspect]
     Active Substance: LOTEPREDNOL ETABONATE
     Indication: KERATOMILEUSIS
     Dosage: 1 DROP, 4X/DAY IN EACH EYE
     Route: 047
     Dates: start: 20210623

REACTIONS (10)
  - Product use complaint [Recovered/Resolved]
  - Eye disorder [Unknown]
  - Product administration error [Recovered/Resolved]
  - Eye irritation [Not Recovered/Not Resolved]
  - Insomnia [Unknown]
  - Visual impairment [Not Recovered/Not Resolved]
  - Sensation of foreign body [Unknown]
  - Inappropriate schedule of product administration [Not Recovered/Not Resolved]
  - Eye complication associated with device [Recovered/Resolved]
  - Vision blurred [Unknown]

NARRATIVE: CASE EVENT DATE: 20210623
